FAERS Safety Report 4990658-0 (Version None)
Quarter: 2006Q2

REPORT INFORMATION
  Report Type: 
  Country: None (occurrence: None)
  Receive Date: 20060427
  Receipt Date: 20060424
  Transmission Date: 20061013
  Serious: Yes (Hospitalization, Other)
  Sender: FDA-Public Use
  Company Number: HQWYE967525APR06

PATIENT
  Age: 74 Year
  Sex: Female
  Weight: 67.19 kg

DRUGS (2)
  1. ADVIL [Suspect]
     Indication: TOOTHACHE
     Dosage: 2 TABLETS X 1, ORAL
     Route: 048
     Dates: start: 20060419, end: 20060419
  2. UNSPECIFIED ANTIHYPERTENSIVE AGENT (UNSPECIFIED ANTIHYPERTENSIVE AGENT [Concomitant]

REACTIONS (4)
  - ERYTHEMA [None]
  - LOSS OF CONSCIOUSNESS [None]
  - PARAESTHESIA [None]
  - PRURITUS GENERALISED [None]
